FAERS Safety Report 6722254-9 (Version None)
Quarter: 2010Q2

REPORT INFORMATION
  Report Type: 
  Country: None (occurrence: None)
  Receive Date: 20100512
  Receipt Date: 20100505
  Transmission Date: 20101027
  Serious: Yes (Hospitalization, Other)
  Sender: FDA-Public Use
  Company Number: US-RB-008561-10

PATIENT
  Sex: Female

DRUGS (1)
  1. SUBOXONE [Suspect]
     Indication: DRUG DEPENDENCE
     Dosage: UNKNOWN UNIT DOSE, STATES TAKES 1.5 PILLS PER DAY
     Route: 060
     Dates: start: 20100427

REACTIONS (3)
  - DYSARTHRIA [None]
  - HALLUCINATION [None]
  - ROAD TRAFFIC ACCIDENT [None]
